FAERS Safety Report 13014161 (Version 1)
Quarter: 2016Q4

REPORT INFORMATION
  Report Type: Spontaneous
  Country: FR (occurrence: FR)
  Receive Date: 20161209
  Receipt Date: 20161209
  Transmission Date: 20170207
  Serious: Yes (Other)
  Sender: FDA-Public Use
  Company Number: FR-CELLTRION INC.-2016FR012810

PATIENT

DRUGS (2)
  1. INFLECTRA [Suspect]
     Active Substance: INFLIXIMAB-DYYB
     Indication: AXIAL SPONDYLOARTHRITIS
     Dosage: 5 MG/KG, UNK
     Route: 041
     Dates: start: 20160715, end: 20160826
  2. INFLECTRA [Suspect]
     Active Substance: INFLIXIMAB-DYYB
     Indication: SPONDYLITIS

REACTIONS (5)
  - Vomiting [Unknown]
  - Headache [Unknown]
  - Nausea [Unknown]
  - Vertigo [Unknown]
  - Drug ineffective [Not Recovered/Not Resolved]

NARRATIVE: CASE EVENT DATE: 201607
